FAERS Safety Report 10098736 (Version 2)
Quarter: 2014Q2

REPORT INFORMATION
  Report Type: Spontaneous
  Country: US (occurrence: US)
  Receive Date: 20140423
  Receipt Date: 20140515
  Transmission Date: 20141212
  Serious: No
  Sender: FDA-Public Use
  Company Number: US-BAXTER-2014BAX019164

PATIENT
  Sex: Male

DRUGS (3)
  1. DIANEAL LOW CALCIUM [Suspect]
     Indication: PERITONEAL DIALYSIS
     Route: 033
  2. DIANEAL LOW CALCIUM [Suspect]
     Indication: PERITONEAL DIALYSIS
     Route: 033
  3. EXTRANEAL [Suspect]
     Indication: PERITONEAL DIALYSIS
     Route: 033
     Dates: end: 201404

REACTIONS (8)
  - Decreased appetite [Recovered/Resolved]
  - Lethargy [Recovered/Resolved]
  - Urinary tract infection [Recovered/Resolved]
  - Gastric infection [Recovering/Resolving]
  - Dizziness [Recovered/Resolved]
  - Abdominal pain upper [Unknown]
  - Muscle spasms [Unknown]
  - Hypotension [Recovered/Resolved]
